FAERS Safety Report 12267047 (Version 2)
Quarter: 2016Q2

REPORT INFORMATION
  Report Type: Spontaneous
  Country: US (occurrence: US)
  Receive Date: 20160414
  Receipt Date: 20160610
  Transmission Date: 20160815
  Serious: No
  Sender: FDA-Public Use
  Company Number: US-PFIZER INC-2016192516

PATIENT
  Age: 56 Year
  Sex: Female

DRUGS (1)
  1. ALPRAZOLAM. [Suspect]
     Active Substance: ALPRAZOLAM
     Indication: ANXIETY
     Dosage: 2 MG, 3X/DAY
     Dates: start: 1990

REACTIONS (1)
  - Drug ineffective [Not Recovered/Not Resolved]
